FAERS Safety Report 5441926-X (Version None)
Quarter: 2007Q3

REPORT INFORMATION
  Report Type: 
  Country: None (occurrence: None)
  Receive Date: 20070904
  Receipt Date: 20070831
  Transmission Date: 20080115
  Serious: Yes (Death, Hospitalization)
  Sender: FDA-Public Use
  Company Number: US-BRISTOL-MYERS SQUIBB COMPANY-13867221

PATIENT
  Age: 51 Year
  Sex: Male
  Weight: 71 kg

DRUGS (30)
  1. CETUXIMAB [Suspect]
     Indication: NON-SMALL CELL LUNG CANCER
     Route: 042
     Dates: start: 20070726, end: 20070726
  2. TAXOTERE [Suspect]
     Indication: NON-SMALL CELL LUNG CANCER
     Route: 042
     Dates: start: 20070719, end: 20070719
  3. GEMZAR [Suspect]
     Indication: NON-SMALL CELL LUNG CANCER
     Route: 042
     Dates: start: 20070719, end: 20070719
  4. DECADRON [Suspect]
     Indication: NON-SMALL CELL LUNG CANCER
     Route: 048
     Dates: start: 20070726, end: 20070726
  5. ACETAMINOPHEN [Concomitant]
     Indication: PAIN
     Dates: start: 20070401, end: 20070801
  6. PERCOCET TABS 5 MG/325 MG [Concomitant]
     Indication: PAIN
     Dates: start: 20070501, end: 20070801
  7. DARVOCET-N 100 [Concomitant]
     Indication: PAIN
     Dates: start: 20070501, end: 20070801
  8. ATIVAN [Concomitant]
     Indication: SLEEP DISORDER
     Dates: start: 20070501, end: 20070801
  9. NEURONTIN [Concomitant]
     Indication: PAIN
     Dates: start: 20070501, end: 20070801
  10. COMPAZINE [Concomitant]
     Indication: NAUSEA
     Dates: start: 20070501, end: 20070801
  11. ALLEGRA D 24 HOUR [Concomitant]
     Indication: COUGH
     Dates: start: 20070501, end: 20070801
  12. ZANTAC 150 [Concomitant]
     Indication: NAUSEA
     Dates: start: 20070501, end: 20070801
  13. BENADRYL [Concomitant]
     Indication: PREMEDICATION
     Dates: start: 20070501, end: 20070801
  14. WELLBUTRIN SR [Concomitant]
     Indication: EX-SMOKER
     Dates: start: 20070501, end: 20070801
  15. CHANTIX [Concomitant]
     Indication: EX-SMOKER
     Dates: start: 20070601, end: 20070801
  16. ALOXI [Concomitant]
     Indication: PREMEDICATION
     Dates: start: 20070501, end: 20070801
  17. VANCOMYCIN [Concomitant]
     Route: 042
     Dates: start: 20070805, end: 20070812
  18. SOLU-MEDROL [Concomitant]
     Dosage: DRUG WAS TAKEN IN DIFFERENT HOURS:Q6H,Q8H,Q12H,Q12,QD.
     Route: 042
     Dates: start: 20070808, end: 20070818
  19. LASIX [Concomitant]
     Dosage: 60MG IV Q12H FROM 17/8/07-18/8/07.
     Dates: start: 20070810, end: 20070813
  20. FENTANYL [Concomitant]
     Dates: start: 20070805, end: 20070813
  21. UNASYN [Concomitant]
     Route: 042
     Dates: start: 20070802, end: 20070811
  22. DIFLUCAN [Concomitant]
     Dosage: QD.
     Route: 042
     Dates: start: 20070802, end: 20070811
  23. LOVENOX [Concomitant]
     Route: 058
     Dates: start: 20070802, end: 20070818
  24. PROTONIX [Concomitant]
     Route: 042
     Dates: start: 20070801, end: 20070819
  25. ANCEF [Concomitant]
     Route: 042
     Dates: start: 20070814, end: 20070815
  26. ZOSYN [Concomitant]
     Route: 042
     Dates: start: 20070812, end: 20070819
  27. INSULIN [Concomitant]
     Dates: start: 20070813, end: 20070817
  28. GENTAMICIN [Concomitant]
     Route: 042
  29. TPN [Concomitant]
     Dates: start: 20070807, end: 20070819
  30. VERSED [Concomitant]
     Route: 042
     Dates: start: 20070805

REACTIONS (5)
  - BACTERAEMIA [None]
  - DUODENAL ULCER PERFORATION [None]
  - INTERSTITIAL LUNG DISEASE [None]
  - PNEUMONIA [None]
  - RESPIRATORY FAILURE [None]
